FAERS Safety Report 4361210-5 (Version None)
Quarter: 2004Q2

REPORT INFORMATION
  Report Type: 
  Country: None (occurrence: None)
  Receive Date: 20040514
  Receipt Date: 20031209
  Transmission Date: 20050107
  Serious: Yes (Other)
  Sender: FDA-Public Use
  Company Number: 03-354-0084

PATIENT
  Age: 77 Year
  Sex: Male

DRUGS (8)
  1. MITOMYCIN [Suspect]
     Indication: BLADDER CANCER
     Dosage: 40MG INTRAVESICL WKLY X 8W
     Route: 043
     Dates: start: 20031013, end: 20031201
  2. ATENOLOL [Concomitant]
  3. NORVASC [Concomitant]
  4. IMDUR [Concomitant]
  5. LESCHOL [Concomitant]
  6. NIACIN [Concomitant]
  7. SYNTHROID [Concomitant]
  8. ASPIRIN [Concomitant]

REACTIONS (5)
  - BALANITIS [None]
  - CHROMATURIA [None]
  - ERYTHEMA [None]
  - PRURITUS [None]
  - URINE ABNORMALITY [None]
